FAERS Safety Report 16403869 (Version 2)
Quarter: 2019Q3

REPORT INFORMATION
  Report Type: Spontaneous
  Country: US (occurrence: US)
  Receive Date: 20190607
  Receipt Date: 20190711
  Transmission Date: 20191004
  Serious: Yes (Death, Other)
  Sender: FDA-Public Use
  Company Number: US-ENDO PHARMACEUTICALS INC-2019-105233

PATIENT
  Age: 62 Year
  Sex: Male

DRUGS (1)
  1. FLUVOXAMINE MALEATE. [Suspect]
     Active Substance: FLUVOXAMINE MALEATE
     Indication: PRODUCT USED FOR UNKNOWN INDICATION
     Dosage: 100 MG, UNKNOWN
     Route: 065

REACTIONS (5)
  - Toxicity to various agents [Fatal]
  - Trunk injury [Unknown]
  - Head injury [Unknown]
  - Completed suicide [Fatal]
  - Intentional overdose [Fatal]
